FAERS Safety Report 8519254-5 (Version None)
Quarter: 2012Q3

REPORT INFORMATION
  Report Type: 
  Country: None (occurrence: None)
  Receive Date: 20120718
  Receipt Date: 20120712
  Transmission Date: 20120928
  Serious: Yes (Hospitalization)
  Sender: FDA-Public Use
  Company Number: US-JNJFOC-20120500926

PATIENT
  Sex: Male
  Weight: 50.8 kg

DRUGS (7)
  1. TRIAMCINOLONE [Concomitant]
  2. MULTI-VITAMINS [Concomitant]
  3. REMICADE [Suspect]
     Route: 042
     Dates: start: 20120101
  4. REMICADE [Suspect]
     Indication: INFLAMMATORY BOWEL DISEASE
     Route: 042
     Dates: start: 20071220, end: 20120101
  5. XOPENEX [Concomitant]
  6. MESALAMINE [Concomitant]
  7. PRILOSEC [Concomitant]

REACTIONS (1)
  - CROHN'S DISEASE [None]
